FAERS Safety Report 6396895-5 (Version None)
Quarter: 2009Q4

REPORT INFORMATION
  Report Type: 
  Country: None (occurrence: None)
  Receive Date: 20091012
  Receipt Date: 20090811
  Transmission Date: 20100525
  Serious: No
  Sender: FDA-Public Use
  Company Number: US-ASTRAZENECA-2009UW15542

PATIENT
  Age: 22754 Day
  Sex: Female
  Weight: 91.6 kg

DRUGS (1)
  1. SYMBICORT [Suspect]
     Indication: ASTHMA
     Dosage: 160/4.5 UG
     Route: 055
     Dates: start: 20090206, end: 20090723

REACTIONS (2)
  - DYSPNOEA [None]
  - FATIGUE [None]
